FAERS Safety Report 7724738-3 (Version None)
Quarter: 2011Q3

REPORT INFORMATION
  Report Type: 
  Country: None (occurrence: None)
  Receive Date: 20110901
  Receipt Date: 20110829
  Transmission Date: 20111222
  Serious: Yes (Other)
  Sender: FDA-Public Use
  Company Number: JP-PFIZER INC-2011196731

PATIENT
  Age: 83 Year
  Sex: Male

DRUGS (11)
  1. DIOVAN [Concomitant]
     Dosage: UNK
  2. ARICEPT [Concomitant]
     Indication: DEMENTIA
  3. TICLOPIDINE HCL [Concomitant]
     Dosage: UNK
  4. MOHRUS TAPE [Concomitant]
     Dosage: UNK
  5. ARICEPT [Concomitant]
     Indication: DEPENDENCE
  6. LOSARTAN POTASSIUM [Concomitant]
     Dosage: UNK
  7. ARICEPT [Concomitant]
     Indication: MEMORY IMPAIRMENT
  8. CEPHADOL [Concomitant]
     Dosage: UNK
  9. ARICEPT [Concomitant]
     Indication: RESTLESSNESS
     Dosage: 5 MG, 1X/DAY
     Route: 048
     Dates: start: 20110301, end: 20110101
  10. RIZE [Concomitant]
     Dosage: UNK
  11. NORVASC [Suspect]
     Indication: HYPERTENSION
     Dosage: 5 MG, DAILY
     Route: 048

REACTIONS (4)
  - BLOOD PRESSURE DECREASED [None]
  - MUSCULOSKELETAL PAIN [None]
  - GAIT DISTURBANCE [None]
  - HEADACHE [None]
